FAERS Safety Report 7342080 (Version 3)
Quarter: 2012Q4

REPORT INFORMATION
  Report Type: Report from Study
  Country: US (occurrence: US)
  Receive Date: 20100402
  Receipt Date: 20121002
  Transmission Date: 20130627
  Serious: Yes (Hospitalization)
  Sender: FDA-Public Use
  Company Number: US-CELGENEUS-163-C5013-10031865

PATIENT
  Age: 83 Year
  Sex: Male
  Weight: 92.16 kg

DRUGS (7)
  1. CC-5013 [Suspect]
     Indication: CLL
     Dosage: 5 Milligram
     Route: 048
     Dates: start: 20100311, end: 20100325
  2. ASPIRIN [Concomitant]
     Indication: THROMBOSIS PROPHYLAXIS
     Dosage: 81 Milligram
     Route: 048
     Dates: start: 20001111
  3. HYDROCHLOROTHIAZIDE [Concomitant]
     Indication: HYPERTENSION
     Dosage: 25 Milligram
     Route: 048
     Dates: start: 19781111
  4. LOTREL [Concomitant]
     Indication: HYPERTENSION
     Dosage: 20 Milligram
     Route: 048
     Dates: start: 20001111
  5. TRICOR [Concomitant]
     Indication: HYPERLIPIDEMIA
     Dosage: 145 Milligram
     Route: 048
     Dates: start: 20081104
  6. CIPRO [Concomitant]
     Indication: DRUG USE FOR UNKNOWN INDICATION
     Route: 041
  7. PAIN MEDICATION [Concomitant]
     Indication: PAIN
     Route: 048

REACTIONS (1)
  - Tumour flare [Recovered/Resolved]
